FAERS Safety Report 10452170 (Version 2)
Quarter: 2014Q4

REPORT INFORMATION
  Report Type: Report from Study
  Country: US (occurrence: US)
  Receive Date: 20140915
  Receipt Date: 20141113
  Transmission Date: 20150528
  Serious: Yes (Hospitalization)
  Sender: FDA-Public Use
  Company Number: US-JNJFOC-20140904681

PATIENT
  Age: 83 Year
  Sex: Male
  Weight: 86.18 kg

DRUGS (11)
  1. LISINOPRIL. [Concomitant]
     Active Substance: LISINOPRIL
     Route: 048
     Dates: start: 2014
  2. MULTI VITAMIN INJECTION [Concomitant]
     Route: 065
     Dates: start: 2007
  3. RISPERIDONE. [Concomitant]
     Active Substance: RISPERIDONE
     Indication: HYPERTENSION
     Route: 065
     Dates: start: 200702
  4. NAMENDA [Concomitant]
     Active Substance: MEMANTINE HYDROCHLORIDE
     Indication: DEMENTIA
     Route: 065
     Dates: start: 2012, end: 2013
  5. ZYTIGA [Suspect]
     Active Substance: ABIRATERONE ACETATE
     Indication: PROSTATE CANCER
     Dosage: 250 MGX 4
     Route: 048
     Dates: start: 201210
  6. WARFARIN [Concomitant]
     Active Substance: WARFARIN
     Indication: ATRIAL FIBRILLATION
     Route: 065
     Dates: start: 200702
  7. NEXIUM [Suspect]
     Active Substance: ESOMEPRAZOLE MAGNESIUM
     Indication: PRODUCT USED FOR UNKNOWN INDICATION
     Route: 048
  8. ZYTIGA [Suspect]
     Active Substance: ABIRATERONE ACETATE
     Indication: PROSTATE CANCER
     Route: 048
     Dates: start: 20131120
  9. RISPERIDONE. [Concomitant]
     Active Substance: RISPERIDONE
     Indication: DEMENTIA
     Route: 065
     Dates: start: 200702
  10. WARFARIN [Concomitant]
     Active Substance: WARFARIN
     Indication: CORONARY ARTERY DISEASE
     Route: 065
     Dates: start: 200702
  11. PREDNISONE. [Concomitant]
     Active Substance: PREDNISONE
     Dosage: 5 (UNITS UNSPECIFIED)
     Route: 065
     Dates: start: 201210

REACTIONS (9)
  - Cardiac pacemaker insertion [Unknown]
  - Urinary incontinence [Unknown]
  - Syncope [Recovered/Resolved]
  - Gait disturbance [Unknown]
  - Unresponsive to stimuli [Unknown]
  - Coronary arterial stent insertion [Unknown]
  - Tremor [Unknown]
  - Foaming at mouth [Unknown]
  - Dyspnoea [Unknown]

NARRATIVE: CASE EVENT DATE: 20131114
